FAERS Safety Report 18839448 (Version 1)
Quarter: 2021Q1

REPORT INFORMATION
  Report Type: Report from Study
  Country: US (occurrence: US)
  Receive Date: 20210203
  Receipt Date: 20210203
  Transmission Date: 20210419
  Serious: No
  Sender: FDA-Public Use
  Company Number: US-EXELIXIS-CABO-20034316

PATIENT
  Sex: Female

DRUGS (3)
  1. YERVOY [Suspect]
     Active Substance: IPILIMUMAB
     Indication: OVARIAN CANCER
     Dosage: UNK
  2. CABOMETYX [Suspect]
     Active Substance: CABOZANTINIB S-MALATE
     Indication: OVARIAN CANCER
     Dosage: 40 MG, QD
     Dates: start: 20200929
  3. OPDIVO [Suspect]
     Active Substance: NIVOLUMAB
     Indication: OVARIAN CANCER
     Dosage: UNK

REACTIONS (11)
  - Sinus disorder [Not Recovered/Not Resolved]
  - Erythema [Recovering/Resolving]
  - Thyroid hormones increased [Unknown]
  - Fatigue [Not Recovered/Not Resolved]
  - Off label use [Unknown]
  - Oral pain [Not Recovered/Not Resolved]
  - Headache [Not Recovered/Not Resolved]
  - Decreased appetite [Unknown]
  - Arthralgia [Not Recovered/Not Resolved]
  - Neuropathy peripheral [Not Recovered/Not Resolved]
  - Liver function test increased [Unknown]
